FAERS Safety Report 12629875 (Version 1)
Quarter: 2016Q3

REPORT INFORMATION
  Report Type: Not Available
  Country: IT (occurrence: IT)
  Receive Date: 20160808
  Receipt Date: 20160808
  Transmission Date: 20161109
  Serious: Yes (Death)
  Sender: FDA-Public Use
  Company Number: IT-ANIPHARMA-2016-IT-000004

PATIENT
  Age: 75 Year
  Sex: Female

DRUGS (1)
  1. LITHIUM CARBONATE (NON-SPECIFIC) [Suspect]
     Active Substance: LITHIUM
     Dosage: 300 MG ONCE DAILY
     Route: 065

REACTIONS (7)
  - Metabolic encephalopathy [Fatal]
  - Osmotic demyelination syndrome [Fatal]
  - Cardio-respiratory arrest [Fatal]
  - Nephrogenic diabetes insipidus [Fatal]
  - Sepsis [Fatal]
  - Atrial fibrillation [Fatal]
  - Toxicity to various agents [Fatal]
